FAERS Safety Report 5753056-8 (Version None)
Quarter: 2008Q2

REPORT INFORMATION
  Report Type: 
  Country: None (occurrence: None)
  Receive Date: 20080527
  Receipt Date: 20080509
  Transmission Date: 20081010
  Serious: Yes (Hospitalization)
  Sender: FDA-Public Use
  Company Number: 2008EU000879

PATIENT
  Age: 59 Year
  Sex: Male

DRUGS (10)
  1. PROGRAF [Suspect]
     Indication: RENAL TRANSPLANT
     Dosage: 14 MG, BID, ORAL
     Route: 048
     Dates: start: 20080301
  2. RAPAMUNE [Suspect]
     Indication: RENAL TRANSPLANT
     Dosage: 4 MG, UID/QD, ORAL
     Route: 048
     Dates: start: 20080301, end: 20080414
  3. MYFORTIC [Concomitant]
  4. PANTOPRAZOLE SODIUM [Concomitant]
  5. ASPIRIN [Concomitant]
  6. NOPIL (SULFAMETHOXAZOLE, TRIMETHOPRIM) [Concomitant]
  7. PRADIF T (TAMSULOSIN HYDROCHLORIDE) [Concomitant]
  8. ATORVASTATIN CALCIUM [Concomitant]
  9. ARANESP [Concomitant]
  10. PRADIF T (TAMSULOSIN HYDROCHLORIDE) [Concomitant]

REACTIONS (2)
  - DRUG TOXICITY [None]
  - RENAL TUBULAR DISORDER [None]
